FAERS Safety Report 16785117 (Version 1)
Quarter: 2019Q3

REPORT INFORMATION
  Report Type: Spontaneous
  Country: US (occurrence: US)
  Receive Date: 20190909
  Receipt Date: 20190909
  Transmission Date: 20191005
  Serious: Yes (Other)
  Sender: FDA-Public Use
  Company Number: US-RECKITT BENCKISER HEALTHCARE INT LIMITED-RB-89716-2019

PATIENT
  Age: 78 Year
  Sex: Male

DRUGS (3)
  1. MUCINEX MAXIMUM STRENGTH [Suspect]
     Active Substance: GUAIFENESIN
     Dosage: 2400 MILLIGRAM, SINGLE (MORNING)
     Route: 065
     Dates: start: 20190904
  2. MUCINEX MAXIMUM STRENGTH [Suspect]
     Active Substance: GUAIFENESIN
     Indication: MALAISE
     Dosage: 3600 MILLIGRAM, TID
     Route: 065
     Dates: start: 20190903
  3. MUCINEX MAXIMUM STRENGTH [Suspect]
     Active Substance: GUAIFENESIN
     Indication: BACK PAIN
     Dosage: 3600 MILLIGRAM, QD
     Route: 065
     Dates: start: 20190902

REACTIONS (3)
  - Product use in unapproved indication [Not Recovered/Not Resolved]
  - Euphoric mood [Not Recovered/Not Resolved]
  - Accidental overdose [Not Recovered/Not Resolved]

NARRATIVE: CASE EVENT DATE: 20190902
